FAERS Safety Report 25314008 (Version 1)
Quarter: 2025Q2

REPORT INFORMATION
  Report Type: Spontaneous
  Country: US (occurrence: US)
  Receive Date: 20250514
  Receipt Date: 20250514
  Transmission Date: 20250716
  Serious: No
  Sender: MYLAN
  Company Number: US-MYLANLABS-2025M1037550

PATIENT
  Age: 71 Year
  Sex: Female

DRUGS (1)
  1. TYRVAYA [Suspect]
     Active Substance: VARENICLINE TARTRATE
     Indication: Product used for unknown indication
     Dosage: 0.03 MILLIGRAM, BID (ONE SPRAY IN EACH NOSTRIL TWICE A DAY)

REACTIONS (5)
  - Sneezing [Unknown]
  - Nasal discomfort [Unknown]
  - Throat irritation [Unknown]
  - Product delivery mechanism issue [Unknown]
  - Product use complaint [Unknown]

NARRATIVE: CASE EVENT DATE: 20250317
